FAERS Safety Report 5829884-7 (Version None)
Quarter: 2008Q3

REPORT INFORMATION
  Report Type: 
  Country: None (occurrence: None)
  Receive Date: 20080801
  Receipt Date: 20080728
  Transmission Date: 20090109
  Serious: Yes (Other)
  Sender: FDA-Public Use
  Company Number: US-BAYER-200824807NA

PATIENT
  Age: 29 Year
  Sex: Female
  Weight: 70 kg

DRUGS (2)
  1. MIRENA [Suspect]
     Indication: CONTRACEPTION
     Route: 015
     Dates: start: 20080603, end: 20080603
  2. CYTOTEC [Concomitant]
     Indication: PROCEDURAL PAIN

REACTIONS (4)
  - CONVULSION [None]
  - LOSS OF CONSCIOUSNESS [None]
  - PROCEDURAL PAIN [None]
  - SYNCOPE VASOVAGAL [None]
